FAERS Safety Report 18463717 (Version 1)
Quarter: 2020Q4

REPORT INFORMATION
  Report Type: Report from Study
  Country: FR (occurrence: FR)
  Receive Date: 20201104
  Receipt Date: 20201104
  Transmission Date: 20210114
  Serious: Yes (Hospitalization)
  Sender: FDA-Public Use
  Company Number: FR-TAKEDA-2020TUS046035

PATIENT

DRUGS (32)
  1. TEDUGLUTIDE [Suspect]
     Active Substance: TEDUGLUTIDE
     Indication: SHORT-BOWEL SYNDROME
     Dosage: 3.6 MILLIGRAM (0.05 MG/KG DAILY DOSE), TED DOSES PER WEEK 7
     Route: 065
     Dates: start: 20161004, end: 20161103
  2. TEDUGLUTIDE [Suspect]
     Active Substance: TEDUGLUTIDE
     Indication: SHORT-BOWEL SYNDROME
     Dosage: 3.6 MILLIGRAM (0.05 MG/KG DAILY DOSE), TED DOSES PER WEEK 7
     Route: 065
     Dates: start: 20161004, end: 20161103
  3. TEDUGLUTIDE [Suspect]
     Active Substance: TEDUGLUTIDE
     Dosage: 3.6 MILLIGRAM (0.05 MG/KG DAILY DOSE), TED DOSES PER WEEK 7
     Route: 065
     Dates: start: 20161209, end: 20170403
  4. TEDUGLUTIDE [Suspect]
     Active Substance: TEDUGLUTIDE
     Dosage: 3.4 MILLIGRAM (0.05 MG/KG DAILY DOSE), TED DOSES PER WEEK 7
     Route: 065
     Dates: start: 20170404, end: 20171016
  5. TEDUGLUTIDE [Suspect]
     Active Substance: TEDUGLUTIDE
     Dosage: 3.4 MILLIGRAM (0.05 MG/KG DAILY DOSE), TED DOSES PER WEEK 7
     Route: 065
     Dates: start: 20171017, end: 20180129
  6. TEDUGLUTIDE [Suspect]
     Active Substance: TEDUGLUTIDE
     Dosage: 3 MILLIGRAM (0.05 MG/KG DAILY DOSE), TED DOSES PER WEEK 7
     Route: 065
     Dates: start: 20180308, end: 20180313
  7. TEDUGLUTIDE [Suspect]
     Active Substance: TEDUGLUTIDE
     Indication: SHORT-BOWEL SYNDROME
     Dosage: 3.6 MILLIGRAM (0.05 MG/KG DAILY DOSE), TED DOSES PER WEEK 7
     Route: 065
     Dates: start: 20161004, end: 20161103
  8. TEDUGLUTIDE [Suspect]
     Active Substance: TEDUGLUTIDE
     Dosage: 3.6 MILLIGRAM (0.05 MG/KG DAILY DOSE), TED DOSES PER WEEK 7
     Route: 065
     Dates: start: 20161209, end: 20170403
  9. TEDUGLUTIDE [Suspect]
     Active Substance: TEDUGLUTIDE
     Dosage: 3 MILLIGRAM (0.05 MG/KG DAILY DOSE), TED DOSES PER WEEK 7
     Route: 065
     Dates: start: 20180130, end: 20180219
  10. TEDUGLUTIDE [Suspect]
     Active Substance: TEDUGLUTIDE
     Dosage: 3 MILLIGRAM (0.05 MG/KG DAILY DOSE), TED DOSES PER WEEK 7
     Route: 065
     Dates: start: 20180308, end: 20180313
  11. TEDUGLUTIDE [Suspect]
     Active Substance: TEDUGLUTIDE
     Dosage: 3.6 MILLIGRAM (0.05 MG/KG DAILY DOSE), TED DOSES PER WEEK 7
     Route: 065
     Dates: start: 20161209, end: 20170403
  12. TEDUGLUTIDE [Suspect]
     Active Substance: TEDUGLUTIDE
     Dosage: 3.4 MILLIGRAM (0.05 MG/KG DAILY DOSE), TED DOSES PER WEEK 7
     Route: 065
     Dates: start: 20170404, end: 20171016
  13. TEDUGLUTIDE [Suspect]
     Active Substance: TEDUGLUTIDE
     Dosage: 3 MILLIGRAM (0.05 MG/KG DAILY DOSE), TED DOSES PER WEEK 7
     Route: 065
     Dates: start: 20180130, end: 20180219
  14. TEDUGLUTIDE [Suspect]
     Active Substance: TEDUGLUTIDE
     Dosage: 3 MILLIGRAM (0.05 MG/KG DAILY DOSE), TED DOSES PER WEEK 7
     Route: 065
     Dates: start: 20180130, end: 20180219
  15. TEDUGLUTIDE [Suspect]
     Active Substance: TEDUGLUTIDE
     Dosage: 3 MILLIGRAM (0.05 MG/KG DAILY DOSE), TED DOSES PER WEEK 7
     Route: 065
     Dates: start: 20180308, end: 20180313
  16. TEDUGLUTIDE [Suspect]
     Active Substance: TEDUGLUTIDE
     Dosage: 3 MILLIGRAM (0.05 MG/KG DAILY DOSE), TED DOSES PER WEEK 7
     Route: 065
     Dates: start: 20180308, end: 20180313
  17. INSULIN [Concomitant]
     Active Substance: INSULIN NOS
     Dosage: 1 UNK
     Dates: start: 20180308, end: 20180308
  18. TEDUGLUTIDE [Suspect]
     Active Substance: TEDUGLUTIDE
     Dosage: 3.8 MILLIGRAM (0.05 MG/KG DAILY DOSE), TED DOSES PER WEEK 7
     Route: 065
     Dates: start: 20161104, end: 20161208
  19. TEDUGLUTIDE [Suspect]
     Active Substance: TEDUGLUTIDE
     Dosage: 3.8 MILLIGRAM (0.05 MG/KG DAILY DOSE), TED DOSES PER WEEK 7
     Route: 065
     Dates: start: 20161104, end: 20161208
  20. TEDUGLUTIDE [Suspect]
     Active Substance: TEDUGLUTIDE
     Dosage: 3.6 MILLIGRAM (0.05 MG/KG DAILY DOSE), TED DOSES PER WEEK 7
     Route: 065
     Dates: start: 20161209, end: 20170403
  21. TEDUGLUTIDE [Suspect]
     Active Substance: TEDUGLUTIDE
     Dosage: 3.4 MILLIGRAM (0.05 MG/KG DAILY DOSE), TED DOSES PER WEEK 7
     Route: 065
     Dates: start: 20170404, end: 20171016
  22. TEDUGLUTIDE [Suspect]
     Active Substance: TEDUGLUTIDE
     Dosage: 3.4 MILLIGRAM (0.05 MG/KG DAILY DOSE), TED DOSES PER WEEK 7
     Route: 065
     Dates: start: 20171017, end: 20180129
  23. TEDUGLUTIDE [Suspect]
     Active Substance: TEDUGLUTIDE
     Dosage: 3.4 MILLIGRAM (0.05 MG/KG DAILY DOSE), TED DOSES PER WEEK 7
     Route: 065
     Dates: start: 20170404, end: 20171016
  24. TEDUGLUTIDE [Suspect]
     Active Substance: TEDUGLUTIDE
     Dosage: 3.4 MILLIGRAM (0.05 MG/KG DAILY DOSE), TED DOSES PER WEEK 7
     Route: 065
     Dates: start: 20171017, end: 20180129
  25. NACL [Concomitant]
     Active Substance: SODIUM CHLORIDE
     Indication: HYPONATRAEMIA
     Dosage: 4 LITER
     Route: 042
     Dates: start: 201802, end: 201802
  26. TEDUGLUTIDE [Suspect]
     Active Substance: TEDUGLUTIDE
     Indication: SHORT-BOWEL SYNDROME
     Dosage: 3.6 MILLIGRAM (0.05 MG/KG DAILY DOSE), TED DOSES PER WEEK 7
     Route: 065
     Dates: start: 20161004, end: 20161103
  27. TEDUGLUTIDE [Suspect]
     Active Substance: TEDUGLUTIDE
     Dosage: 3.8 MILLIGRAM (0.05 MG/KG DAILY DOSE), TED DOSES PER WEEK 7
     Route: 065
     Dates: start: 20161104, end: 20161208
  28. LASIX [Concomitant]
     Active Substance: FUROSEMIDE
     Indication: HYPERKALAEMIA
     Dosage: 1 UNK, QD
     Route: 065
     Dates: start: 20180308, end: 20180308
  29. TEDUGLUTIDE [Suspect]
     Active Substance: TEDUGLUTIDE
     Dosage: 3.8 MILLIGRAM (0.05 MG/KG DAILY DOSE), TED DOSES PER WEEK 7
     Route: 065
     Dates: start: 20161104, end: 20161208
  30. TEDUGLUTIDE [Suspect]
     Active Substance: TEDUGLUTIDE
     Dosage: 3.4 MILLIGRAM (0.05 MG/KG DAILY DOSE), TED DOSES PER WEEK 7
     Route: 065
     Dates: start: 20171017, end: 20180129
  31. TEDUGLUTIDE [Suspect]
     Active Substance: TEDUGLUTIDE
     Dosage: 3 MILLIGRAM (0.05 MG/KG DAILY DOSE), TED DOSES PER WEEK 7
     Route: 065
     Dates: start: 20180130, end: 20180219
  32. INSULIN [Concomitant]
     Active Substance: INSULIN NOS
     Indication: HYPERKALAEMIA
     Dosage: 10 INTERNATIONAL UNIT, QD
     Dates: start: 20180218, end: 20180218

REACTIONS (1)
  - Metabolic alkalosis [Not Recovered/Not Resolved]

NARRATIVE: CASE EVENT DATE: 20200901
